FAERS Safety Report 14717581 (Version 2)
Quarter: 2019Q4

REPORT INFORMATION
  Report Type: Spontaneous
  Country: US (occurrence: US)
  Receive Date: 20180404
  Receipt Date: 20191022
  Transmission Date: 20200122
  Serious: No
  Sender: FDA-Public Use
  Company Number: US-SA-2018SA014364

PATIENT
  Age: 75 Year
  Sex: Male
  Weight: 85.71 kg

DRUGS (3)
  1. XIPAMIDE [Concomitant]
     Active Substance: XIPAMIDE
     Dosage: UNK UNK,UNK
     Route: 065
  2. DUPIXENT [Suspect]
     Active Substance: DUPILUMAB
     Indication: DERMATITIS ATOPIC
     Dosage: 300 MG,QOW
     Route: 058
     Dates: start: 201710
  3. ENTERIC ASPIRIN [Concomitant]
     Active Substance: ASPIRIN
     Dosage: UNK UNK,UNK
     Route: 065

REACTIONS (2)
  - Hyperaesthesia [Unknown]
  - Waist circumference decreased [Unknown]

NARRATIVE: CASE EVENT DATE: 2017
